FAERS Safety Report 17618395 (Version 1)
Quarter: 2020Q2

REPORT INFORMATION
  Report Type: Spontaneous
  Country: US (occurrence: US)
  Receive Date: 20200402
  Receipt Date: 20200402
  Transmission Date: 20200713
  Serious: No
  Sender: FDA-Public Use
  Company Number: US-ROCHE-2526651

PATIENT
  Sex: Male
  Weight: 80.81 kg

DRUGS (3)
  1. ERIVEDGE [Suspect]
     Active Substance: VISMODEGIB
     Indication: BASAL CELL CARCINOMA
     Dosage: ONGOING : NO
     Route: 048
  2. ERIVEDGE [Suspect]
     Active Substance: VISMODEGIB
     Dosage: ONGOING:YES
     Route: 048
  3. ELIQUIS [Concomitant]
     Active Substance: APIXABAN
     Indication: ATRIAL FIBRILLATION
     Dosage: ONGOING:YES
     Route: 048

REACTIONS (3)
  - Weight decreased [Not Recovered/Not Resolved]
  - Muscle spasms [Not Recovered/Not Resolved]
  - Diarrhoea [Recovered/Resolved]
